FAERS Safety Report 15477076 (Version 1)
Quarter: 2018Q4

REPORT INFORMATION
  Report Type: Spontaneous
  Country: US (occurrence: US)
  Receive Date: 20181009
  Receipt Date: 20181009
  Transmission Date: 20190205
  Serious: No
  Sender: FDA-Public Use
  Company Number: US-BAYER-2018-184364

PATIENT
  Age: 41 Year
  Sex: Male
  Weight: 79 kg

DRUGS (1)
  1. MIRALAX [Suspect]
     Active Substance: POLYETHYLENE GLYCOL 3350
     Indication: GASTROINTESTINAL DISORDER
     Dosage: 1 DF, QD
     Route: 048

REACTIONS (4)
  - Poor quality product administered [None]
  - Incorrect product administration duration [None]
  - Product odour abnormal [Unknown]
  - Incorrect dose administered [None]

NARRATIVE: CASE EVENT DATE: 20181001
